FAERS Safety Report 4603902-6 (Version None)
Quarter: 2005Q1

REPORT INFORMATION
  Report Type: 
  Country: None (occurrence: None)
  Receive Date: 20050309
  Receipt Date: 20050224
  Transmission Date: 20050727
  Serious: Yes (Other)
  Sender: FDA-Public Use
  Company Number: 2005037814

PATIENT
  Age: 35 Year
  Sex: Male

DRUGS (1)
  1. RHINOPRONT KOMBI(PSEUDOEPHEDRINE, TRIPROLIDINE) [Suspect]
     Dosage: 1 TABLET TWICE, ORAL
     Route: 048
     Dates: start: 20050215, end: 20050225

REACTIONS (3)
  - BACK DISORDER [None]
  - DIZZINESS [None]
  - LOSS OF CONSCIOUSNESS [None]
